FAERS Safety Report 26001827 (Version 3)
Quarter: 2025Q4

REPORT INFORMATION
  Report Type: Spontaneous
  Country: CA (occurrence: CA)
  Receive Date: 20251105
  Receipt Date: 20251204
  Transmission Date: 20260117
  Serious: Yes (Hospitalization, Other)
  Sender: PFIZER
  Company Number: CA-PFIZER INC-202500216182

PATIENT
  Age: 64 Year
  Sex: Male

DRUGS (2)
  1. RUXIENCE [Suspect]
     Active Substance: RITUXIMAB-PVVR
     Indication: Multiple sclerosis
     Dosage: 1000 MG, EVERY 6 MONTHS
     Route: 042
     Dates: start: 20250225
  2. RUXIENCE [Suspect]
     Active Substance: RITUXIMAB-PVVR
     Dosage: 1000 MG, ONCE THEN 500 MG Q3 MONTHS
     Route: 042
     Dates: start: 20250825

REACTIONS (5)
  - Mobility decreased [Recovered/Resolved]
  - Subdural haematoma [Recovering/Resolving]
  - Spinal disorder [Unknown]
  - Infusion related reaction [Unknown]
  - Fatigue [Unknown]

NARRATIVE: CASE EVENT DATE: 20250101
